FAERS Safety Report 9337999 (Version 1)
Quarter: 2013Q2

REPORT INFORMATION
  Report Type: Spontaneous
  Country: GB (occurrence: GB)
  Receive Date: 20130609
  Receipt Date: 20130609
  Transmission Date: 20140414
  Serious: Yes (Hospitalization)
  Sender: FDA-Public Use
  Company Number: GB-MYLANLABS-2013S1011757

PATIENT
  Age: 71 Year
  Sex: Male
  Weight: 85 kg

DRUGS (12)
  1. IRINOTECAN [Suspect]
     Indication: PANCREATIC CARCINOMA
     Route: 042
     Dates: start: 20121003, end: 20121205
  2. OXALIPLATIN [Suspect]
     Indication: PANCREATIC CARCINOMA
     Route: 042
     Dates: start: 20121003, end: 20121205
  3. FLUOROURACIL [Suspect]
     Indication: PANCREATIC CARCINOMA
     Route: 042
     Dates: start: 20121003, end: 20121207
  4. FLUOROURACIL [Suspect]
     Indication: PANCREATIC CARCINOMA
     Route: 040
  5. DEXAMETHASONE [Suspect]
     Indication: PROPHYLAXIS OF NAUSEA AND VOMITING
     Route: 048
     Dates: start: 20121003, end: 20121208
  6. AMLODIPINE [Concomitant]
     Indication: PRODUCT USED FOR UNKNOWN INDICATION
  7. CIPROFLOXACIN [Concomitant]
     Indication: PRODUCT USED FOR UNKNOWN INDICATION
  8. CREON [Concomitant]
     Indication: PRODUCT USED FOR UNKNOWN INDICATION
  9. DOMPERIDONE [Concomitant]
     Indication: PRODUCT USED FOR UNKNOWN INDICATION
  10. FOLINIC ACID [Concomitant]
     Indication: PRODUCT USED FOR UNKNOWN INDICATION
  11. GRANISETRON [Concomitant]
     Indication: PRODUCT USED FOR UNKNOWN INDICATION
  12. THYROXINE [Concomitant]
     Indication: PRODUCT USED FOR UNKNOWN INDICATION

REACTIONS (3)
  - Depressed mood [Unknown]
  - Hypomania [Recovered/Resolved with Sequelae]
  - Malaise [Unknown]
